FAERS Safety Report 6544467-1 (Version None)
Quarter: 2010Q1

REPORT INFORMATION
  Report Type: 
  Country: None (occurrence: None)
  Receive Date: 20100121
  Receipt Date: 20100112
  Transmission Date: 20100710
  Serious: Yes (Hospitalization)
  Sender: FDA-Public Use
  Company Number: JP-ROCHE-625314

PATIENT
  Sex: Male
  Weight: 95 kg

DRUGS (19)
  1. TOCILIZUMAB [Suspect]
     Indication: RHEUMATOID ARTHRITIS
     Route: 041
     Dates: start: 20081110, end: 20081110
  2. TOCILIZUMAB [Suspect]
     Route: 041
     Dates: start: 20081208, end: 20081208
  3. TOCILIZUMAB [Suspect]
     Route: 041
     Dates: start: 20090106, end: 20090106
  4. TOCILIZUMAB [Suspect]
     Route: 041
     Dates: start: 20090203, end: 20090203
  5. TOCILIZUMAB [Suspect]
     Route: 041
     Dates: start: 20090303, end: 20090303
  6. TOCILIZUMAB [Suspect]
     Route: 041
     Dates: start: 20090421, end: 20090421
  7. TOCILIZUMAB [Suspect]
     Route: 041
     Dates: start: 20090519, end: 20090101
  8. TOCILIZUMAB [Suspect]
     Route: 041
     Dates: start: 20090616, end: 20090616
  9. TOCILIZUMAB [Suspect]
     Route: 041
     Dates: start: 20090727, end: 20090727
  10. TOCILIZUMAB [Suspect]
     Route: 041
     Dates: start: 20090825, end: 20090825
  11. TOCILIZUMAB [Suspect]
     Route: 041
     Dates: start: 20091008, end: 20091008
  12. TOCILIZUMAB [Suspect]
     Route: 041
     Dates: start: 20091105
  13. PREDNISOLONE [Concomitant]
     Route: 048
     Dates: end: 20090202
  14. PREDNISOLONE [Concomitant]
     Route: 048
     Dates: start: 20090203, end: 20090615
  15. PREDNISOLONE [Concomitant]
     Route: 048
     Dates: start: 20090616, end: 20090816
  16. PREDNISOLONE [Concomitant]
     Route: 048
     Dates: start: 20090817
  17. VOLTAREN [Concomitant]
     Dosage: FORM: SUSTAINED RELEASE CAPSULE
     Route: 048
  18. MUCOSTA [Concomitant]
     Dosage: FORM: ORAL FORMULATION (NOS)
     Route: 048
  19. BONALON [Concomitant]
     Dosage: DRUG: BONALON 35 MG
     Route: 048

REACTIONS (2)
  - SUBCUTANEOUS ABSCESS [None]
  - VARICOSE VEIN RUPTURED [None]
